FAERS Safety Report 7957143-5 (Version None)
Quarter: 2011Q4

REPORT INFORMATION
  Report Type: 
  Country: None (occurrence: None)
  Receive Date: 20111205
  Receipt Date: 20111125
  Transmission Date: 20120403
  Serious: No
  Sender: FDA-Public Use
  Company Number: JP-ASTRAZENECA-2011SE69025

PATIENT
  Age: 12194 Day
  Sex: Male
  Weight: 80 kg

DRUGS (4)
  1. WARFARIN SODIUM [Concomitant]
     Route: 048
  2. PERSANTIN [Concomitant]
     Route: 048
  3. CRESTOR [Suspect]
     Indication: HYPERLIPIDAEMIA
     Route: 048
     Dates: start: 20110913, end: 20111104
  4. ULGUT [Concomitant]
     Route: 048

REACTIONS (2)
  - HAEMATURIA [None]
  - MYALGIA [None]
